FAERS Safety Report 15451182 (Version 2)
Quarter: 2018Q4

REPORT INFORMATION
  Report Type: Spontaneous
  Country: US (occurrence: US)
  Receive Date: 20181001
  Receipt Date: 20181006
  Transmission Date: 20190204
  Serious: No
  Sender: FDA-Public Use
  Company Number: US-009507513-1809USA011701

PATIENT
  Age: 38 Year
  Sex: Female

DRUGS (1)
  1. TICE BCG [Suspect]
     Active Substance: BACILLUS CALMETTE-GUERIN SUBSTRAIN TICE LIVE ANTIGEN
     Indication: BLADDER CANCER
     Dosage: UNK
     Dates: start: 20180924

REACTIONS (8)
  - Product quality issue [Unknown]
  - Exposure via direct contact [Unknown]
  - Exposure via inhalation [Unknown]
  - Feeling jittery [Recovered/Resolved]
  - Product use issue [Unknown]
  - Heart rate increased [Recovered/Resolved]
  - Occupational exposure to product [Unknown]
  - Erythema [Recovered/Resolved]

NARRATIVE: CASE EVENT DATE: 20180924
